FAERS Safety Report 7207732-0 (Version None)
Quarter: 2011Q1

REPORT INFORMATION
  Report Type: 
  Country: None (occurrence: None)
  Receive Date: 20110103
  Receipt Date: 20101227
  Transmission Date: 20110831
  Serious: Yes (Hospitalization, Other)
  Sender: FDA-Public Use
  Company Number: US-JNJFOC-20101208949

PATIENT
  Age: 48 Year
  Sex: Male

DRUGS (4)
  1. TOPAMAX [Suspect]
     Dosage: U-SEP-2010 TO U-U-2010
     Route: 048
  2. TOPAMAX [Suspect]
     Dosage: FOR 4 WEEKS
     Route: 048
  3. TOPAMAX [Suspect]
     Indication: HEADACHE
     Route: 048
  4. TOPAMAX [Suspect]
     Dosage: FOR 2 WEEKS
     Route: 048

REACTIONS (8)
  - CHEST PAIN [None]
  - DRUG ADMINISTRATION ERROR [None]
  - LIGAMENT INJURY [None]
  - MUSCULOSKELETAL PAIN [None]
  - NAUSEA [None]
  - DRUG DISPENSING ERROR [None]
  - CORONARY ARTERY DISEASE [None]
  - HEADACHE [None]
